FAERS Safety Report 8946949 (Version 1)
Quarter: 2012Q4

REPORT INFORMATION
  Report Type: Report from Study
  Country: FR (occurrence: FR)
  Receive Date: 20121205
  Receipt Date: 20121205
  Transmission Date: 20130627
  Serious: Yes (Hospitalization)
  Sender: FDA-Public Use
  Company Number: FR-PFIZER INC-2010171417

PATIENT
  Age: 53 Year
  Sex: Female
  Weight: 54 kg

DRUGS (16)
  1. ARACYTINE [Suspect]
     Dosage: UNK
     Dates: start: 20101025, end: 20101026
  2. ARACYTINE [Suspect]
     Dosage: UNK
     Dates: start: 20101115, end: 20101116
  3. DOXORUBICIN HCL [Suspect]
     Dosage: UNK
     Dates: start: 20101025, end: 20101026
  4. DOXORUBICIN HCL [Suspect]
     Dosage: UNK
     Dates: start: 20101115, end: 20101116
  5. DEXAMETHASONE [Suspect]
     Dosage: UNK
     Dates: start: 20101025, end: 20101026
  6. DEXAMETHASONE [Suspect]
     Dosage: UNK
     Dates: start: 20101115, end: 20101116
  7. CARBOPLATIN [Suspect]
     Dosage: UNK
     Dates: start: 20101025, end: 20101026
  8. CARBOPLATIN [Suspect]
     Dosage: UNK
     Dates: start: 20101115, end: 20101116
  9. INOTUZUMAB OZOGAMICIN [Suspect]
     Indication: DIFFUSE LARGE B-CELL LYMPHOMA
     Dosage: UNK
     Route: 042
     Dates: start: 20100820, end: 20101001
  10. RITUXIMAB [Suspect]
     Indication: DIFFUSE LARGE B-CELL LYMPHOMA
     Dosage: 590 mg, UNK
     Dates: start: 20100817, end: 20100817
  11. RITUXIMAB [Suspect]
     Dosage: 590 mg, UNK
     Dates: start: 20100819, end: 20100819
  12. RITUXIMAB [Suspect]
     Dosage: 590 mg, UNK
     Dates: start: 20100909, end: 20100909
  13. RITUXIMAB [Suspect]
     Dosage: 590 mg, UNK
     Dates: start: 20100930, end: 20100930
  14. GRANOCYTE [Concomitant]
     Indication: NEUTROPENIA
     Dosage: UNK
     Dates: start: 201011
  15. GRANOCYTE [Concomitant]
     Dosage: UNK
     Dates: start: 201011
  16. NEORECORMON ^ROCHE^ [Concomitant]
     Indication: ANEMIA
     Dosage: 30000 IU, weekly
     Dates: start: 201011

REACTIONS (1)
  - Aplasia [Recovered/Resolved]
